FAERS Safety Report 5578256-1 (Version None)
Quarter: 2007Q4

REPORT INFORMATION
  Report Type: 
  Country: None (occurrence: None)
  Receive Date: 20071227
  Receipt Date: 20071207
  Transmission Date: 20080405
  Serious: Yes (Other)
  Sender: FDA-Public Use
  Company Number: 2007S1013350

PATIENT
  Age: 13 Year
  Sex: Female

DRUGS (8)
  1. AZATHIOPRINE [Suspect]
     Indication: RENAL TRANSPLANT
     Dosage: 50 MG; X1 ORAL
     Route: 048
     Dates: start: 20071205, end: 20071205
  2. PROGRAF [Concomitant]
  3. PROGRAF [Concomitant]
  4. SODIUM BICARBONATE IN PLASTIC CONTAINER [Concomitant]
  5. PREDNISONE [Concomitant]
  6. PEPCID /00706001/ (FAMOTIDINE) [Concomitant]
  7. EPIPEN /00003901/ (EPINEPHRINE) [Concomitant]
  8. ALBUTEROL [Concomitant]

REACTIONS (7)
  - BRONCHOSPASM [None]
  - DRUG INEFFECTIVE [None]
  - DYSPNOEA [None]
  - FOOD ALLERGY [None]
  - LATEX ALLERGY [None]
  - MILK ALLERGY [None]
  - REACTION TO DRUG EXCIPIENTS [None]
